FAERS Safety Report 9803779 (Version 1)
Quarter: 2014Q1

REPORT INFORMATION
  Report Type: Spontaneous
  Country: US (occurrence: US)
  Receive Date: 20140108
  Receipt Date: 20140108
  Transmission Date: 20141002
  Serious: No
  Sender: FDA-Public Use
  Company Number: US-GLAXOSMITHKLINE-A1036605A

PATIENT
  Age: 66 Year
  Sex: Female

DRUGS (7)
  1. LOVAZA [Suspect]
     Indication: BLOOD TRIGLYCERIDES INCREASED
     Dosage: 1TAB PER DAY
     Route: 048
     Dates: start: 2009
  2. CAPTOPRIL [Concomitant]
  3. TOPROL [Concomitant]
  4. VITORIN [Concomitant]
  5. FOLIC ACID [Concomitant]
  6. GLIMEPIRIDE [Concomitant]
  7. GLUMETZA [Concomitant]

REACTIONS (3)
  - Abdominal discomfort [Unknown]
  - Flatulence [Unknown]
  - Product quality issue [Unknown]
